FAERS Safety Report 13021232 (Version 1)
Quarter: 2016Q4

REPORT INFORMATION
  Report Type: Spontaneous
  Country: FR (occurrence: FR)
  Receive Date: 20161213
  Receipt Date: 20161213
  Transmission Date: 20170207
  Serious: Yes (Other)
  Sender: FDA-Public Use
  Company Number: FR-ROCHE-1866653

PATIENT
  Age: 71 Year
  Sex: Female

DRUGS (7)
  1. BACTRIM [Suspect]
     Active Substance: SULFAMETHOXAZOLE\TRIMETHOPRIM
     Indication: PYELONEPHRITIS ACUTE
     Route: 048
     Dates: start: 20160820, end: 20160827
  2. LYSANXIA [Concomitant]
     Active Substance: PRAZEPAM
  3. ROCEPHINE [Suspect]
     Active Substance: CEFTRIAXONE SODIUM
     Indication: PYELONEPHRITIS ACUTE
     Route: 030
     Dates: start: 20161020, end: 20161025
  4. EUTHYRAL [Concomitant]
     Active Substance: LEVOTHYROXINE SODIUM\LIOTHYRONINE SODIUM
  5. POLARAMINE [Concomitant]
     Active Substance: DEXCHLORPHENIRAMINE MALEATE
  6. OFLOCET [Suspect]
     Active Substance: OFLOXACIN
     Indication: PYELONEPHRITIS ACUTE
     Route: 048
     Dates: start: 20161015
  7. OROKEN [Suspect]
     Active Substance: CEFIXIME
     Indication: PYELONEPHRITIS ACUTE
     Route: 048
     Dates: start: 20160917, end: 20160924

REACTIONS (1)
  - Drug reaction with eosinophilia and systemic symptoms [Recovered/Resolved]

NARRATIVE: CASE EVENT DATE: 20161026
